FAERS Safety Report 24135923 (Version 2)
Quarter: 2024Q4

REPORT INFORMATION
  Report Type: Other
  Country: SI (occurrence: SI)
  Receive Date: 20240725
  Receipt Date: 20241010
  Transmission Date: 20250115
  Serious: Yes (Life-Threatening, Hospitalization, Other)
  Sender: EYWA PHARMA
  Company Number: SI-Eywa Pharma Inc.-2159577

PATIENT
  Age: 69 Year
  Sex: Male

DRUGS (20)
  1. ALBUTEROL [Suspect]
     Active Substance: ALBUTEROL
     Indication: Chronic obstructive pulmonary disease
  2. NOREPINEPHRINE [Concomitant]
     Active Substance: NOREPINEPHRINE\NOREPINEPHRINE BITARTRATE
  3. BISACODYL [Concomitant]
     Active Substance: BISACODYL
  4. CLEMASTINE FUMARATE [Concomitant]
     Active Substance: CLEMASTINE FUMARATE
  5. SPIRONOLACTONE [Concomitant]
     Active Substance: SPIRONOLACTONE
  6. THIETHYLPERAZINE [Concomitant]
     Active Substance: THIETHYLPERAZINE
  7. MAGNESIUM SULFATE [Concomitant]
     Active Substance: MAGNESIUM SULFATE
  8. TENOFOVIR [Concomitant]
     Active Substance: TENOFOVIR
  9. ALLOPURINOL [Concomitant]
     Active Substance: ALLOPURINOL
  10. PANTOPRAZOLE SODIUM [Concomitant]
     Active Substance: PANTOPRAZOLE SODIUM
  11. EPLERENONE [Concomitant]
     Active Substance: EPLERENONE
  12. ASPIRIN [Concomitant]
     Active Substance: ASPIRIN
  13. FUROSEMIDE [Concomitant]
     Active Substance: FUROSEMIDE
  14. MORPHINE SULFATE [Concomitant]
     Active Substance: MORPHINE SULFATE
  15. FENOTEROL\IPRATROPIUM [Concomitant]
     Active Substance: FENOTEROL\IPRATROPIUM
  16. MEROPENEM [Concomitant]
     Active Substance: MEROPENEM
  17. VANCOMYCIN HYDROCHLORIDE [Concomitant]
     Active Substance: VANCOMYCIN HYDROCHLORIDE
  18. PIPERACILLIN AND TAZOBACTAM [Concomitant]
     Active Substance: PIPERACILLIN SODIUM\TAZOBACTAM SODIUM
  19. OXYGEN [Concomitant]
     Active Substance: OXYGEN
  20. HYDROCORTISONE ACETATE [Concomitant]
     Active Substance: HYDROCORTISONE ACETATE

REACTIONS (11)
  - Septic shock [Unknown]
  - Hyperglycaemia [Unknown]
  - Hyperlactacidaemia [Unknown]
  - Hypokalaemia [Unknown]
  - Cardiogenic shock [Unknown]
  - Accidental exposure to product [Unknown]
  - Toxicity to various agents [Unknown]
  - Tachycardia [Recovered/Resolved]
  - Hypotension [Unknown]
  - Drug level increased [Recovering/Resolving]
  - Haemodynamic instability [Unknown]
